FAERS Safety Report 8073926-8 (Version None)
Quarter: 2012Q1

REPORT INFORMATION
  Report Type: 
  Country: None (occurrence: None)
  Receive Date: 20120126
  Receipt Date: 20120125
  Transmission Date: 20120608
  Serious: Yes (Death)
  Sender: FDA-Public Use
  Company Number: US-PFIZER INC-2011000539

PATIENT
  Age: 40 Year
  Sex: Male

DRUGS (11)
  1. NISOLDIPINE [Suspect]
     Route: 048
  2. GLYBURIDE [Suspect]
     Route: 048
  3. ENALAPRIL MALEATE [Suspect]
     Route: 048
  4. HYDRALAZINE HCL [Suspect]
     Route: 048
  5. TAMSULOSIN HCL [Suspect]
     Route: 048
  6. ACETAMINOPHEN AND HYDROCODONE BITARTRATE [Suspect]
     Route: 048
  7. AMLODIPINE BESYLATE [Suspect]
     Route: 048
  8. LEVOTHYROXINE SODIUM [Suspect]
     Route: 048
  9. CLOPIDOGREL [Suspect]
     Indication: COMPLETED SUICIDE
     Route: 048
  10. FUROSEMIDE [Suspect]
     Route: 048
  11. SIMVASTATIN [Suspect]
     Route: 048

REACTIONS (2)
  - COMPLETED SUICIDE [None]
  - TOXICITY TO VARIOUS AGENTS [None]
